FAERS Safety Report 10161822 (Version 1)
Quarter: 2014Q2

REPORT INFORMATION
  Report Type: Other
  Country: DE (occurrence: DE)
  Receive Date: 20140509
  Receipt Date: 20140509
  Transmission Date: 20141212
  Serious: Yes (Other)
  Sender: FDA-Public Use
  Company Number: DE-LUPIN PHARMACEUTICALS INC.-2014-00980

PATIENT
  Age: 39 Year
  Sex: Female
  Weight: 61 kg

DRUGS (3)
  1. LAMOTRIGIN [Suspect]
     Indication: EPILEPSY
     Route: 048
  2. LAMOTRIGIN [Suspect]
     Route: 048
     Dates: end: 20131010
  3. DOPPELHERZ AKTIV FOLSAURE 800 [Concomitant]
     Indication: PROPHYLAXIS OF NEURAL TUBE DEFECT
     Route: 048
     Dates: start: 20130209, end: 20131010

REACTIONS (2)
  - Urinary tract infection [Unknown]
  - Exposure during pregnancy [Unknown]
